FAERS Safety Report 17241311 (Version 1)
Quarter: 2020Q1

REPORT INFORMATION
  Report Type: Spontaneous
  Country: US (occurrence: US)
  Receive Date: 20200106
  Receipt Date: 20200106
  Transmission Date: 20200409
  Serious: Yes (Hospitalization)
  Sender: FDA-Public Use
  Company Number: None

PATIENT
  Age: 5 Year
  Sex: Female

DRUGS (10)
  1. TOBRAMYCIN. [Suspect]
     Active Substance: TOBRAMYCIN
     Indication: RESPIRATORY DISORDER
     Route: 055
  2. BACLOFEN. [Concomitant]
     Active Substance: BACLOFEN
  3. FYCOMPA [Concomitant]
     Active Substance: PERAMPANEL
  4. AMOX/K CLAV [Concomitant]
     Active Substance: AMOXICILLIN\CLAVULANATE POTASSIUM
  5. VITAMIN D3 [Concomitant]
     Active Substance: CHOLECALCIFEROL
  6. PULMOZYME [Suspect]
     Active Substance: DORNASE ALFA
     Indication: RESPIRATORY DISORDER
     Route: 055
  7. SYMBICORT [Concomitant]
     Active Substance: BUDESONIDE\FORMOTEROL FUMARATE DIHYDRATE
  8. CETERIZINE [Concomitant]
     Active Substance: CETIRIZINE HYDROCHLORIDE
  9. ZONISAMIDE. [Concomitant]
     Active Substance: ZONISAMIDE
  10. ONFI [Concomitant]
     Active Substance: CLOBAZAM

REACTIONS (1)
  - Respiratory disorder [None]
